FAERS Safety Report 22520165 (Version 2)
Quarter: 2023Q2

REPORT INFORMATION
  Report Type: Spontaneous
  Country: CN (occurrence: CN)
  Receive Date: 20230605
  Receipt Date: 20230607
  Transmission Date: 20230722
  Serious: Yes (Other)
  Sender: FDA-Public Use
  Company Number: CN-PFIZER INC-PV202300097216

PATIENT
  Age: 38 Year
  Sex: Male

DRUGS (1)
  1. AZITHROMYCIN [Suspect]
     Active Substance: AZITHROMYCIN
     Dosage: 0.5 G, 1X/DAY
     Route: 041
     Dates: start: 20230518, end: 20230518

REACTIONS (5)
  - Paraesthesia [Recovered/Resolved]
  - Tachypnoea [Recovered/Resolved]
  - Hypoaesthesia [Recovered/Resolved]
  - Muscle rigidity [Recovered/Resolved]
  - Gait inability [Recovered/Resolved]

NARRATIVE: CASE EVENT DATE: 20230518
